FAERS Safety Report 5006532-X (Version None)
Quarter: 2006Q2

REPORT INFORMATION
  Report Type: 
  Country: None (occurrence: None)
  Receive Date: 20060519
  Receipt Date: 20060510
  Transmission Date: 20061013
  Serious: Yes (Life-Threatening)
  Sender: FDA-Public Use
  Company Number: CN-SANOFI-SYNTHELABO-A01200603574

PATIENT
  Age: 58 Year
  Sex: Male
  Weight: 94 kg

DRUGS (4)
  1. ELOXATIN [Suspect]
     Indication: RECTAL CANCER
     Route: 042
     Dates: start: 20060509, end: 20060509
  2. LEUTINAN [Suspect]
     Indication: RECTAL CANCER
     Route: 042
     Dates: start: 20060509, end: 20060509
  3. FLUOROURACIL [Concomitant]
     Indication: RECTAL CANCER
     Route: 042
     Dates: start: 20060509, end: 20060509
  4. CALCIUM FOLINATE [Concomitant]
     Route: 042
     Dates: start: 20060509, end: 20060509

REACTIONS (7)
  - ANAPHYLACTIC REACTION [None]
  - CHILLS [None]
  - CYANOSIS [None]
  - HYPOTENSION [None]
  - LARYNGOSPASM [None]
  - TACHYPNOEA [None]
  - WHEEZING [None]
